FAERS Safety Report 18172153 (Version 1)
Quarter: 2020Q3

REPORT INFORMATION
  Report Type: Spontaneous
  Country: CA (occurrence: CA)
  Receive Date: 20200819
  Receipt Date: 20200819
  Transmission Date: 20201103
  Serious: Yes (Other)
  Sender: FDA-Public Use
  Company Number: CA-ANIPHARMA-2020-CA-001594

PATIENT
  Age: 84 Year
  Sex: Female

DRUGS (16)
  1. PANTOPRAZOLE [Suspect]
     Active Substance: PANTOPRAZOLE
     Dosage: 40 MG DAILY
     Route: 048
  2. TRAZODONE [Suspect]
     Active Substance: TRAZODONE HYDROCHLORIDE
     Dosage: 25 MG UNK / 50 MG DAILY / 50 MG UNK
     Route: 048
  3. DIMENHYDRINATE. [Suspect]
     Active Substance: DIMENHYDRINATE
     Dosage: 50 MG UNK
     Route: 065
  4. LEVOTHYROXINE SODIUM. [Suspect]
     Active Substance: LEVOTHYROXINE SODIUM
     Dosage: .05 MG DAILY
     Route: 065
  5. CITALOPRAM [Suspect]
     Active Substance: CITALOPRAM HYDROBROMIDE
     Dosage: 5 MG DAILY
     Route: 065
  6. CANDESARTAN CILEXETIL. [Suspect]
     Active Substance: CANDESARTAN CILEXETIL
     Indication: HYPERTENSION
     Dosage: 4 MG DAILY
     Route: 048
  7. METOCLOPRAMIDE. [Suspect]
     Active Substance: METOCLOPRAMIDE
     Dosage: 10 MG TID
     Route: 065
  8. REACTINE [CETIRIZINE] [Suspect]
     Active Substance: CETIRIZINE HYDROCHLORIDE
     Dosage: 20 MG DAILY
     Route: 065
  9. LEVODOPA?CARBIDOPA [Suspect]
     Active Substance: CARBIDOPA\LEVODOPA
     Dosage: UNKNOWN DOSE, THREE TIMES A DAY
     Route: 065
  10. TIMOLOL. [Suspect]
     Active Substance: TIMOLOL
     Dosage: UNKNOWN DOSE, TWO TIMES A DAY
  11. MIRTAZAPINE. [Suspect]
     Active Substance: MIRTAZAPINE
     Dosage: 7.5 MG DAILY
     Route: 065
  12. RISEDRONATE SODIUM. [Suspect]
     Active Substance: RISEDRONATE SODIUM
     Dosage: 150 MG DAILY / 150 MG UNK
     Route: 065
  13. ROSUVASTATIN. [Suspect]
     Active Substance: ROSUVASTATIN
     Dosage: 20 MG DAILY / UNK
     Route: 048
  14. BETAHISTINE [Suspect]
     Active Substance: BETAHISTINE
     Dosage: 8 MG TID / UNK / 8 MG UNK / 8 MG QD / 8 MG BID
     Route: 065
  15. BISOPROLOL FUMARATE. [Suspect]
     Active Substance: BISOPROLOL FUMARATE
     Dosage: 1.25 MG QD
     Route: 065
  16. ERGOCALCIFEROL. [Suspect]
     Active Substance: ERGOCALCIFEROL
     Dosage: 1000 IU DAILY
     Route: 065

REACTIONS (20)
  - Hypotension [Unknown]
  - Vomiting [Unknown]
  - Constipation [Unknown]
  - Lacrimation increased [Unknown]
  - Vertigo [Unknown]
  - Dizziness [Unknown]
  - Loss of personal independence in daily activities [Unknown]
  - Parkinson^s disease [Unknown]
  - Vitamin B12 decreased [Unknown]
  - Depressed mood [Unknown]
  - Dry mouth [Unknown]
  - Drug ineffective [Unknown]
  - Hypersensitivity [Unknown]
  - Condition aggravated [Unknown]
  - Abdominal distension [Unknown]
  - Fatigue [Unknown]
  - Eye pruritus [Unknown]
  - Fall [Unknown]
  - Nausea [Unknown]
  - Decreased appetite [Unknown]
